FAERS Safety Report 6754604-1 (Version None)
Quarter: 2010Q2

REPORT INFORMATION
  Report Type: 
  Country: None (occurrence: None)
  Receive Date: 20100603
  Receipt Date: 20100602
  Transmission Date: 20101027
  Serious: Yes (Hospitalization)
  Sender: FDA-Public Use
  Company Number: US-EISAI INC.-E2020-06584-SOL-US

PATIENT
  Sex: Female
  Weight: 56 kg

DRUGS (10)
  1. ARICEPT [Suspect]
     Indication: DRUG USE FOR UNKNOWN INDICATION
     Route: 048
     Dates: start: 20080120, end: 20100322
  2. ACTONEL [Concomitant]
     Route: 048
     Dates: start: 20080301
  3. CELEBREX [Concomitant]
     Dates: start: 20080301, end: 20100322
  4. HYDROXYUREA [Concomitant]
     Indication: THROMBOCYTOSIS
     Dates: start: 20080301, end: 20100322
  5. LEVOTHYROXINE SODIUM [Concomitant]
     Dates: start: 20080301
  6. MVI WITH FOLIC ACID [Concomitant]
     Dates: start: 20080301
  7. ASPIRIN [Concomitant]
     Dates: start: 20080301
  8. VITAMIN B6 [Concomitant]
  9. EVISTA [Concomitant]
  10. SYNTHROID [Concomitant]
     Dates: end: 20100322

REACTIONS (3)
  - CHOLELITHIASIS [None]
  - PANCREATITIS [None]
  - WOUND DRAINAGE [None]
